FAERS Safety Report 23021697 (Version 7)
Quarter: 2023Q4

REPORT INFORMATION
  Report Type: Spontaneous
  Country: CA (occurrence: CA)
  Receive Date: 20231003
  Receipt Date: 20231218
  Transmission Date: 20240110
  Serious: Yes (Other)
  Sender: FDA-Public Use
  Company Number: CA-PFIZER INC-PV202300074423

PATIENT
  Age: 26 Year
  Sex: Male
  Weight: 105.6 kg

DRUGS (18)
  1. ZIRABEV [Suspect]
     Active Substance: BEVACIZUMAB-BVZR
     Indication: Renal cancer metastatic
     Dosage: 1050 MG (10 MG/KG), EVERY 2 WEEKS
     Route: 042
     Dates: start: 20230518
  2. ZIRABEV [Suspect]
     Active Substance: BEVACIZUMAB-BVZR
     Dosage: 1050 MG (10 MG/KG), EVERY 2 WEEKS
     Route: 042
     Dates: start: 20230518
  3. ZIRABEV [Suspect]
     Active Substance: BEVACIZUMAB-BVZR
     Dosage: 1050 MG
     Route: 042
     Dates: start: 20230615
  4. ZIRABEV [Suspect]
     Active Substance: BEVACIZUMAB-BVZR
     Dosage: 1050 MG
     Route: 042
     Dates: start: 20230629
  5. ZIRABEV [Suspect]
     Active Substance: BEVACIZUMAB-BVZR
     Dosage: 1050 MG
     Route: 042
     Dates: start: 20230629
  6. ZIRABEV [Suspect]
     Active Substance: BEVACIZUMAB-BVZR
     Dosage: 1050 MG
     Route: 042
     Dates: start: 20230713
  7. ZIRABEV [Suspect]
     Active Substance: BEVACIZUMAB-BVZR
     Dosage: 1050 MG
     Route: 042
     Dates: start: 20230713
  8. ZIRABEV [Suspect]
     Active Substance: BEVACIZUMAB-BVZR
     Dosage: 1050 MG
     Route: 042
     Dates: start: 20230810
  9. ZIRABEV [Suspect]
     Active Substance: BEVACIZUMAB-BVZR
     Dosage: 1050 MG
     Route: 042
     Dates: start: 20230907
  10. ZIRABEV [Suspect]
     Active Substance: BEVACIZUMAB-BVZR
     Dosage: 1050 MG
     Route: 042
     Dates: start: 20230921
  11. ZIRABEV [Suspect]
     Active Substance: BEVACIZUMAB-BVZR
     Dosage: 1050 MG
     Route: 042
     Dates: start: 20230921
  12. ZIRABEV [Suspect]
     Active Substance: BEVACIZUMAB-BVZR
     Dosage: 1050 MG, EVERY 2 WEEKS
     Route: 042
     Dates: start: 20231005
  13. ZIRABEV [Suspect]
     Active Substance: BEVACIZUMAB-BVZR
     Dosage: 1050 MG, EVERY 2 WEEKS
     Route: 042
     Dates: start: 20231019
  14. ZIRABEV [Suspect]
     Active Substance: BEVACIZUMAB-BVZR
     Dosage: 1050 MG, EVERY 2 WEEKS
     Route: 042
     Dates: start: 20231019
  15. ZIRABEV [Suspect]
     Active Substance: BEVACIZUMAB-BVZR
     Dosage: 1039 MG
     Route: 042
     Dates: start: 20231102
  16. ZIRABEV [Suspect]
     Active Substance: BEVACIZUMAB-BVZR
     Dosage: 1039 MG
     Route: 042
     Dates: start: 20231102
  17. ZIRABEV [Suspect]
     Active Substance: BEVACIZUMAB-BVZR
     Dosage: 1039 MG, EVERY 2 WEEKS
     Route: 042
     Dates: start: 20231120
  18. ZIRABEV [Suspect]
     Active Substance: BEVACIZUMAB-BVZR
     Dosage: 1039 MG, EVERY 2 WEEKS
     Route: 042
     Dates: start: 20231120, end: 2023

REACTIONS (9)
  - Urinary retention [Unknown]
  - Off label use [Unknown]
  - Weight increased [Not Recovered/Not Resolved]
  - Blood pressure diastolic decreased [Not Recovered/Not Resolved]
  - Blood pressure diastolic increased [Unknown]
  - Blood pressure systolic increased [Recovered/Resolved]
  - Arthralgia [Recovered/Resolved]
  - Poor venous access [Unknown]
  - Weight decreased [Unknown]

NARRATIVE: CASE EVENT DATE: 20230101
